FAERS Safety Report 16284402 (Version 1)
Quarter: 2019Q2

REPORT INFORMATION
  Report Type: Spontaneous
  Country: FI (occurrence: FI)
  Receive Date: 20190508
  Receipt Date: 20190508
  Transmission Date: 20190711
  Serious: Yes (Other)
  Sender: FDA-Public Use
  Company Number: FI-AMGEN-FINSP2019070733

PATIENT
  Age: 61 Year
  Sex: Male

DRUGS (1)
  1. KYPROLIS [Suspect]
     Active Substance: CARFILZOMIB
     Indication: PLASMA CELL MYELOMA
     Dosage: UNK
     Route: 042
     Dates: start: 20180724, end: 20181107

REACTIONS (2)
  - Haemolysis [Recovered/Resolved]
  - Coombs negative haemolytic anaemia [Recovered/Resolved]

NARRATIVE: CASE EVENT DATE: 20181112
